FAERS Safety Report 11183766 (Version 1)
Quarter: 2015Q2

REPORT INFORMATION
  Report Type: Spontaneous
  Country: ES (occurrence: ES)
  Receive Date: 20150612
  Receipt Date: 20150612
  Transmission Date: 20150821
  Serious: Yes (Disabling, Other)
  Sender: FDA-Public Use
  Company Number: ES-ABBVIE-15K-144-1405083-00

PATIENT
  Age: 51 Year
  Sex: Female

DRUGS (1)
  1. HUMIRA [Suspect]
     Active Substance: ADALIMUMAB
     Indication: CROHN^S DISEASE
     Route: 065
     Dates: start: 201412, end: 201505

REACTIONS (4)
  - Transaminases increased [Unknown]
  - Gamma-glutamyltransferase increased [Unknown]
  - Polyneuropathy [Unknown]
  - Paraesthesia [Unknown]

NARRATIVE: CASE EVENT DATE: 201505
